FAERS Safety Report 16154035 (Version 1)
Quarter: 2019Q2

REPORT INFORMATION
  Report Type: Report from Study
  Country: ZA (occurrence: ZA)
  Receive Date: 20190403
  Receipt Date: 20190403
  Transmission Date: 20190711
  Serious: Yes (Hospitalization)
  Sender: FDA-Public Use
  Company Number: ZA-SA-2019SA054090

PATIENT
  Age: 40 Year
  Sex: Male

DRUGS (13)
  1. HYPERPHEN [Concomitant]
     Active Substance: HYDRALAZINE HYDROCHLORIDE
     Dosage: UNK UNK, UNK
     Dates: start: 20190314
  2. OPTISULIN (INSULIN GLARGINE) [Suspect]
     Active Substance: INSULIN GLARGINE
     Dosage: 20 U, BID (BEFORE BREAKFAST, BEFORE SUPPER)
     Dates: start: 20190213
  3. ZARTAN [Concomitant]
     Active Substance: LOSARTAN POTASSIUM
     Dosage: UNK UNK, UNK
     Dates: start: 20190314
  4. ZOXADON [Concomitant]
     Active Substance: RISPERIDONE
     Dosage: UNK UNK, UNK
     Dates: start: 20190314
  5. ECOTRIN [Concomitant]
     Active Substance: ASPIRIN
     Dosage: UNK UNK, UNK
     Dates: start: 20190314
  6. ADCO-ATENOLOL [Concomitant]
     Active Substance: ATENOLOL
     Dosage: UNK UNK, UNK
     Dates: start: 20190314
  7. AMLOC [AMLODIPINE BESILATE] [Concomitant]
     Active Substance: AMLODIPINE BESYLATE
     Dosage: UNK UNK, UNK
     Dates: start: 20190314
  8. ADCO DAPAMAX [Concomitant]
     Active Substance: INDAPAMIDE
     Dosage: UNK UNK, UNK
     Dates: start: 20190314
  9. ISMO [Concomitant]
     Active Substance: ISOSORBIDE MONONITRATE
     Dosage: UNK UNK, UNK
     Dates: start: 20190314
  10. ASPAVOR [Concomitant]
     Active Substance: ATORVASTATIN
     Dosage: UNK UNK, UNK
     Dates: start: 20190314
  11. LYRICA [Concomitant]
     Active Substance: PREGABALIN
     Dosage: UNK UNK, UNK
     Dates: start: 20190314
  12. NO STUDY DRUG GIVEN [Suspect]
     Active Substance: UNSPECIFIED INGREDIENT
     Dosage: UNK
  13. APIDRA [Concomitant]
     Active Substance: INSULIN GLULISINE
     Dosage: 10 U, TID (BEFORE BREAKFAST, BEFORE LUNCH AND BEFORE SUPPER)
     Dates: start: 20190222

REACTIONS (3)
  - Glycosylated haemoglobin increased [Unknown]
  - Off label use [Unknown]
  - Hypertension [Not Recovered/Not Resolved]

NARRATIVE: CASE EVENT DATE: 20190327
